FAERS Safety Report 6059716-6 (Version None)
Quarter: 2009Q1

REPORT INFORMATION
  Report Type: 
  Country: None (occurrence: None)
  Receive Date: 20090130
  Receipt Date: 20090126
  Transmission Date: 20090719
  Serious: Yes (Hospitalization, Other)
  Sender: FDA-Public Use
  Company Number: BE-ROCHE-592787

PATIENT
  Sex: Male
  Weight: 66 kg

DRUGS (7)
  1. METHOXY POLYETHYLENE GLYCOL-EPOETIN BETA [Suspect]
     Route: 058
     Dates: start: 20080819
  2. METHOXY POLYETHYLENE GLYCOL-EPOETIN BETA [Suspect]
     Dosage: LAST DOSE GIVEN ON 09 DEC 2008
     Route: 058
  3. RANITIDINE [Concomitant]
     Route: 042
     Dates: start: 20081020
  4. AMOXICILLIN AND CLAVULANATE POTASSIUM [Concomitant]
     Route: 042
     Dates: start: 20081020
  5. ENOXAPARIN SODIUM [Concomitant]
     Route: 058
     Dates: start: 20081022
  6. PANTOPRAZOLE SODIUM [Concomitant]
     Route: 048
     Dates: start: 20081022
  7. ACENOCOUMAROL [Concomitant]

REACTIONS (3)
  - CARDIAC FAILURE [None]
  - OESOPHAGITIS [None]
  - PANCYTOPENIA [None]
